FAERS Safety Report 10582507 (Version 1)
Quarter: 2014Q4

REPORT INFORMATION
  Report Type: Spontaneous
  Country: BR (occurrence: BR)
  Receive Date: 20141113
  Receipt Date: 20141113
  Transmission Date: 20150529
  Serious: Yes (Hospitalization, Other)
  Sender: FDA-Public Use
  Company Number: BR-ELI_LILLY_AND_COMPANY-BR201411001836

PATIENT
  Age: 56 Year
  Sex: Female
  Weight: 95 kg

DRUGS (13)
  1. HUMULIN N [Suspect]
     Active Substance: INSULIN HUMAN
     Indication: TYPE 2 DIABETES MELLITUS
     Dosage: 20 IU, EACH MORNING
     Route: 058
     Dates: start: 2011
  2. LOSARTAN [Concomitant]
     Active Substance: LOSARTAN
     Indication: CARDIAC DISORDER
     Dosage: 1 DF, EACH MORNING
     Route: 065
  3. LEVOTHYROXINE SODIUM. [Concomitant]
     Active Substance: LEVOTHYROXINE SODIUM
     Indication: THYROID DISORDER
     Dosage: 1 DF, UNKNOWN
     Route: 065
  4. AMITRIPTYLIN [Concomitant]
     Active Substance: AMITRIPTYLINE
     Dosage: 1 DF, QD
     Route: 065
  5. SINVASTATINA [Concomitant]
     Indication: BLOOD CHOLESTEROL
     Dosage: 1 DF, QD
     Route: 065
  6. ALDACTONE [Concomitant]
     Active Substance: SPIRONOLACTONE
     Indication: CARDIAC DISORDER
     Dosage: 1 DF, QD
     Route: 065
  7. LASIX [Concomitant]
     Active Substance: FUROSEMIDE
     Indication: CARDIAC DISORDER
     Dosage: UNK, UNKNOWN
     Route: 065
  8. CARVEDILOL. [Concomitant]
     Active Substance: CARVEDILOL
     Dosage: 1 DF, EACH EVENING
     Route: 065
  9. LOSARTAN [Concomitant]
     Active Substance: LOSARTAN
     Dosage: 1 DF, EACH EVENING
     Route: 065
  10. GLIFAGE [Concomitant]
     Active Substance: METFORMIN HYDROCHLORIDE
     Dosage: 2 DF, EACH EVENING
     Route: 065
  11. HUMULIN N [Suspect]
     Active Substance: INSULIN HUMAN
     Dosage: 16 IU, EACH EVENING
     Route: 058
     Dates: start: 2011
  12. CARVEDILOL. [Concomitant]
     Active Substance: CARVEDILOL
     Indication: CARDIAC DISORDER
     Dosage: 1 DF, EACH MORNING
     Route: 065
  13. GLIFAGE [Concomitant]
     Active Substance: METFORMIN HYDROCHLORIDE
     Indication: DIABETES MELLITUS
     Dosage: 1 DF, EACH MORNING
     Route: 065

REACTIONS (2)
  - Cataract [Recovered/Resolved]
  - Pleural effusion [Recovered/Resolved]

NARRATIVE: CASE EVENT DATE: 20140701
